FAERS Safety Report 10914409 (Version 2)
Quarter: 2015Q2

REPORT INFORMATION
  Report Type: Spontaneous
  Country: US (occurrence: US)
  Receive Date: 20150313
  Receipt Date: 20150421
  Transmission Date: 20150821
  Serious: No
  Sender: FDA-Public Use
  Company Number: US-GLAXOSMITHKLINE-US2015024872

PATIENT
  Age: 86 Year
  Sex: Male

DRUGS (8)
  1. VITAMIN D [Concomitant]
     Active Substance: CHOLECALCIFEROL
  2. ADVAIR DISKUS [Suspect]
     Active Substance: FLUTICASONE PROPIONATE\SALMETEROL XINAFOATE
     Indication: ASTHMA
     Dosage: 1 PUFF(S), BID
     Route: 055
  3. ASPIRIN. [Concomitant]
     Active Substance: ASPIRIN
  4. MEPROBAMATE. [Concomitant]
     Active Substance: MEPROBAMATE
  5. WARFARIN [Concomitant]
     Active Substance: WARFARIN
  6. LISINOPRIL. [Concomitant]
     Active Substance: LISINOPRIL
  7. LASIX [Concomitant]
     Active Substance: FUROSEMIDE
  8. NORVASC [Concomitant]
     Active Substance: AMLODIPINE BESYLATE

REACTIONS (5)
  - Drug administration error [Unknown]
  - Dyspnoea [Not Recovered/Not Resolved]
  - Wheezing [Not Recovered/Not Resolved]
  - Product quality issue [Unknown]
  - Intentional product use issue [Unknown]

NARRATIVE: CASE EVENT DATE: 20150114
